FAERS Safety Report 9298795 (Version 2)
Quarter: 2013Q2

REPORT INFORMATION
  Report Type: Spontaneous
  Country: GB (occurrence: GB)
  Receive Date: 20130520
  Receipt Date: 20130520
  Transmission Date: 20140414
  Serious: Yes (Hospitalization)
  Sender: FDA-Public Use
  Company Number: GB-NAPPMUNDI-GBR-2012-0012203

PATIENT
  Sex: Female

DRUGS (5)
  1. OXYCODONE HYDROCHLORIDE [Suspect]
     Indication: PAIN
     Route: 048
  2. LAXIDO [Suspect]
  3. WARFARIN [Concomitant]
  4. ADCAL /00056901/ [Concomitant]
  5. FERROUS SULPHATE                   /00023503/ [Concomitant]

REACTIONS (5)
  - Renal tubular acidosis [Unknown]
  - Hyperkalaemia [Unknown]
  - Hyponatraemia [Unknown]
  - Renal failure acute [None]
  - Dialysis [None]
